FAERS Safety Report 14472458 (Version 1)
Quarter: 2018Q1

REPORT INFORMATION
  Report Type: Report from Study
  Country: DE (occurrence: DE)
  Receive Date: 20180201
  Receipt Date: 20180201
  Transmission Date: 20180509
  Serious: Yes (Hospitalization)
  Sender: FDA-Public Use
  Company Number: DE-TEVA-2018-DE-850663

PATIENT
  Age: 61 Year
  Sex: Female
  Weight: 63.3 kg

DRUGS (5)
  1. DOCETAXEL. [Suspect]
     Active Substance: DOCETAXEL
     Dosage: 75 MG/M2 DAILY; DAILY DOSE: 75 MG / M2 BSA
  2. VARGATEF [Suspect]
     Active Substance: NINTEDANIB
     Indication: LUNG ADENOCARCINOMA
     Dosage: 400 MILLIGRAM DAILY;
     Route: 048
     Dates: start: 20170419
  3. VARGATEF [Suspect]
     Active Substance: NINTEDANIB
     Dosage: 400 MILLIGRAM DAILY;
     Route: 048
  4. DOCETAXEL. [Suspect]
     Active Substance: DOCETAXEL
     Indication: LUNG ADENOCARCINOMA
     Dosage: 75 MG/M2 DAILY; DAILY DOSE: 75 MG / M2 BSA
     Dates: start: 20170418
  5. ULTIBRO BREEZHALER 85/43 [Concomitant]
     Indication: HYPOVENTILATION
     Route: 055
     Dates: start: 20170715

REACTIONS (13)
  - Personality change [Recovered/Resolved]
  - Venous thrombosis [Recovered/Resolved]
  - Mucosal infection [Recovered/Resolved]
  - General physical health deterioration [Recovered/Resolved]
  - Hypothyroidism [Not Recovered/Not Resolved]
  - Urinary tract infection [Recovered/Resolved]
  - Dysuria [Not Recovered/Not Resolved]
  - Embolism [Recovered/Resolved]
  - Hypoventilation [Not Recovered/Not Resolved]
  - Chills [Recovered/Resolved]
  - White blood cell count decreased [Recovered/Resolved]
  - Urinary retention [Recovered/Resolved]
  - Lung infection [Recovered/Resolved]

NARRATIVE: CASE EVENT DATE: 20170418
